FAERS Safety Report 12302169 (Version 1)
Quarter: 2016Q2

REPORT INFORMATION
  Report Type: Spontaneous
  Country: FR (occurrence: FR)
  Receive Date: 20160425
  Receipt Date: 20160425
  Transmission Date: 20160815
  Serious: Yes (Hospitalization)
  Sender: FDA-Public Use
  Company Number: FR-PFIZER INC-2016220505

PATIENT
  Age: 28 Year
  Sex: Male

DRUGS (6)
  1. XANAX [Suspect]
     Active Substance: ALPRAZOLAM
     Dosage: 0.5 MG, 2X/DAY
     Route: 048
  2. THERALENE [Suspect]
     Active Substance: TRIMEPRAZINE
     Dosage: 600 MG (12 MG X 50 DF), SINGLE
     Route: 048
     Dates: start: 20160322, end: 20160322
  3. TERCIAN [Concomitant]
     Active Substance: CYAMEMAZINE
     Dosage: 25 MG (1 DF) IN EVENING
  4. LEXOMIL [Suspect]
     Active Substance: BROMAZEPAM
     Dosage: 360 MG (6 MG X 60 DF), SINGLE
     Route: 048
     Dates: start: 20160322, end: 20160322
  5. XANAX [Suspect]
     Active Substance: ALPRAZOLAM
     Dosage: 16 MG (0.5 MG X 32 DF), SINGLE
     Route: 048
     Dates: start: 20160322, end: 20160322
  6. XEROQUEL [Concomitant]
     Active Substance: QUETIAPINE FUMARATE
     Dosage: 800 MG (400 MG X 2 DFS) IN EVENING

REACTIONS (5)
  - Intentional overdose [Recovered/Resolved]
  - Altered state of consciousness [Recovered/Resolved]
  - Hypotension [Recovered/Resolved]
  - Suicide attempt [Unknown]
  - Toxicity to various agents [Unknown]

NARRATIVE: CASE EVENT DATE: 20160322
